FAERS Safety Report 24033293 (Version 10)
Quarter: 2025Q3

REPORT INFORMATION
  Report Type: Report from Study
  Country: BR (occurrence: BR)
  Receive Date: 20240701
  Receipt Date: 20250711
  Transmission Date: 20251021
  Serious: Yes (Other)
  Sender: IPSEN BIOPHARMACEUTICALS, INC.
  Company Number: BR-IPSEN Group, Research and Development-2024-07692

PATIENT
  Age: 68 Year
  Sex: Female
  Weight: 70 kg

DRUGS (14)
  1. LANREOTIDE ACETATE [Suspect]
     Active Substance: LANREOTIDE ACETATE
     Indication: Acromegaly
     Dates: start: 20240222
  2. LANREOTIDE ACETATE [Suspect]
     Active Substance: LANREOTIDE ACETATE
  3. LANREOTIDE ACETATE [Suspect]
     Active Substance: LANREOTIDE ACETATE
  4. ZINPASS [Concomitant]
     Indication: Blood cholesterol abnormal
     Dosage: 1 TABLET AFTER DINNER
     Dates: start: 202404
  5. DAPAGLIFLOZIN [Concomitant]
     Active Substance: DAPAGLIFLOZIN
     Indication: Diabetes mellitus
     Dosage: 1 TABLET PER DAY
     Dates: start: 202404
  6. HYDROCHLOROTHIAZIDE [Concomitant]
     Active Substance: HYDROCHLOROTHIAZIDE
     Indication: Hypertension
     Dosage: 1 TAB IN THE MORNING
  7. LOSARTAN [Concomitant]
     Active Substance: LOSARTAN
     Indication: Hypertension
     Dosage: 1 TABLET IN THE MORNING AND 1 TABLET IN THE EVENING
  8. CLONAZEPAM [Concomitant]
     Active Substance: CLONAZEPAM
     Indication: Cerebrovascular accident
  9. ASPIRIN [Concomitant]
     Active Substance: ASPIRIN
     Indication: Prophylaxis
     Dosage: 1 TABLET AFTER LUNCH
     Dates: start: 202404
  10. INSULIN NOS [Concomitant]
     Active Substance: INSULIN NOS
  11. INSULIN NOS [Concomitant]
     Active Substance: INSULIN NOS
  12. NPH INSULIN [Concomitant]
     Active Substance: INSULIN BEEF
  13. NPH INSULIN [Concomitant]
     Active Substance: INSULIN BEEF
  14. GLYXAMBI [Concomitant]
     Active Substance: EMPAGLIFLOZIN\LINAGLIPTIN
     Indication: Diabetes mellitus

REACTIONS (14)
  - Product dose omission issue [Unknown]
  - Asthenia [Unknown]
  - Insulin-like growth factor increased [Unknown]
  - Injection site pain [Unknown]
  - Sitting disability [Unknown]
  - Nervousness [Unknown]
  - Nausea [Unknown]
  - Flatulence [Unknown]
  - Eructation [Unknown]
  - Product supply issue [Unknown]
  - Inappropriate schedule of product administration [Unknown]
  - Product ineffective [Unknown]
  - Inappropriate schedule of product administration [Unknown]
  - Inappropriate schedule of product administration [Unknown]

NARRATIVE: CASE EVENT DATE: 20240502
